FAERS Safety Report 24343919 (Version 1)
Quarter: 2024Q3

REPORT INFORMATION
  Report Type: Spontaneous
  Country: US (occurrence: US)
  Receive Date: 20240920
  Receipt Date: 20240920
  Transmission Date: 20241017
  Serious: No
  Sender: BRAEBURN PHARMACEUTICALS
  Company Number: US-BRAEBURN-US-BRA-24-000530

PATIENT
  Age: 23 Year
  Sex: Female

DRUGS (3)
  1. BRIXADI [Suspect]
     Active Substance: BUPRENORPHINE
     Indication: Drug dependence
     Dosage: 8 MILLIGRAM, WEEKLY
     Route: 058
     Dates: start: 20240502
  2. BRIXADI [Suspect]
     Active Substance: BUPRENORPHINE
     Dosage: 16 MILLIGRAM, WEEKLY
     Route: 057
     Dates: start: 20240530
  3. BRIXADI [Suspect]
     Active Substance: BUPRENORPHINE
     Dosage: UNK, MONTHLY
     Route: 058

REACTIONS (4)
  - Injection site rash [Recovered/Resolved]
  - Rash papular [Recovered/Resolved]
  - Injection site erythema [Recovered/Resolved]
  - Injection site mass [Recovered/Resolved]

NARRATIVE: CASE EVENT DATE: 20240524
